FAERS Safety Report 9016762 (Version 1)
Quarter: 2013Q1

REPORT INFORMATION
  Report Type: Spontaneous
  Country: JP (occurrence: JP)
  Receive Date: 20130116
  Receipt Date: 20130116
  Transmission Date: 20140127
  Serious: Yes (Other)
  Sender: FDA-Public Use
  Company Number: JP-009507513-1301JPN005284

PATIENT
  Age: 62 Year
  Sex: Male

DRUGS (1)
  1. GASTER D [Suspect]
     Indication: PRODUCT USED FOR UNKNOWN INDICATION
     Dosage: UNK
     Route: 048
     Dates: start: 201010, end: 201012

REACTIONS (1)
  - Drug-induced liver injury [Unknown]
